FAERS Safety Report 11736284 (Version 1)
Quarter: 2015Q4

REPORT INFORMATION
  Report Type: Spontaneous
  Country: US (occurrence: US)
  Receive Date: 20151110
  Receipt Date: 20151110
  Transmission Date: 20160304
  Serious: No
  Sender: FDA-Public Use
  Company Number: US-ELI_LILLY_AND_COMPANY-US201206005511

PATIENT
  Age: 83 Year
  Sex: Female

DRUGS (3)
  1. FORTEO [Suspect]
     Active Substance: TERIPARATIDE
     Indication: OSTEOPOROSIS
     Dosage: 20 UG, QD
     Dates: start: 20120324
  2. NOVOCAIN [Concomitant]
     Active Substance: PROCAINE HYDROCHLORIDE
  3. FORTEO [Suspect]
     Active Substance: TERIPARATIDE
     Dosage: 20 UG, QD
     Dates: end: 201205

REACTIONS (5)
  - Headache [Not Recovered/Not Resolved]
  - Dizziness [Unknown]
  - Drug interaction [Unknown]
  - Feeling abnormal [Unknown]
  - Tooth repair [Unknown]

NARRATIVE: CASE EVENT DATE: 20120328
